FAERS Safety Report 5216574-7 (Version None)
Quarter: 2007Q1

REPORT INFORMATION
  Report Type: 
  Country: None (occurrence: None)
  Receive Date: 20061130
  Receipt Date: 20060926
  Transmission Date: 20070707
  Serious: Yes (Hospitalization, Other)
  Sender: FDA-Public Use
  Company Number: US200608003038

PATIENT
  Age: 33 Year
  Sex: Female
  Weight: 99.8 kg

DRUGS (4)
  1. ZYPREXA [Suspect]
     Dosage: 2.5 MG, ORAL
     Route: 048
     Dates: start: 19980101, end: 20040101
  2. FLUPHENAZINE [Concomitant]
  3. BENZTROPINE MESYLATE (BENZTROPINE MESILATE) [Concomitant]
  4. NORTRIPTYLINE HCL [Concomitant]

REACTIONS (7)
  - CARDIAC FAILURE CONGESTIVE [None]
  - DIABETES MELLITUS [None]
  - DIABETIC KETOACIDOSIS [None]
  - HYPERTENSION [None]
  - METABOLIC DISORDER [None]
  - MYOCARDIAL ISCHAEMIA [None]
  - OBESITY [None]
